FAERS Safety Report 5804901-9 (Version None)
Quarter: 2008Q3

REPORT INFORMATION
  Report Type: 
  Country: None (occurrence: None)
  Receive Date: 20080709
  Receipt Date: 20080627
  Transmission Date: 20090109
  Serious: Yes (Other)
  Sender: FDA-Public Use
  Company Number: PHNU2007DE03175

PATIENT
  Sex: Female

DRUGS (2)
  1. DIOVAN [Suspect]
     Indication: HYPERTENSION
     Dosage: 80MG
     Route: 048
     Dates: start: 20031112, end: 20070101
  2. BISOPROLOL FUMARATE [Concomitant]
     Dosage: 5 MG, QD
     Route: 048
     Dates: start: 20040217

REACTIONS (6)
  - ARTHRALGIA [None]
  - BLOOD PRESSURE INADEQUATELY CONTROLLED [None]
  - MYALGIA [None]
  - OSTEOPOROSIS [None]
  - POLYMYALGIA RHEUMATICA [None]
  - SPINAL OSTEOARTHRITIS [None]
